FAERS Safety Report 11902132 (Version 8)
Quarter: 2018Q1

REPORT INFORMATION
  Report Type: Report from Study
  Country: US (occurrence: US)
  Receive Date: 20160108
  Receipt Date: 20180323
  Transmission Date: 20180508
  Serious: Yes (Hospitalization)
  Sender: FDA-Public Use
  Company Number: US-ACTELION-A-NJ2015-115041

PATIENT
  Age: 77 Year
  Sex: Female
  Weight: 82.99 kg

DRUGS (4)
  1. MYCOPHENOLATE [Concomitant]
     Active Substance: MYCOPHENOLIC ACID
     Dosage: UNK
  2. PREDNISONE. [Concomitant]
     Active Substance: PREDNISONE
     Dosage: UNK
     Dates: start: 20140703
  3. REVATIO [Concomitant]
     Active Substance: SILDENAFIL CITRATE
  4. OPSUMIT [Suspect]
     Active Substance: MACITENTAN
     Indication: PULMONARY ARTERIAL HYPERTENSION
     Dosage: 10 MG, QD
     Route: 048
     Dates: start: 20150213

REACTIONS (26)
  - Syncope [Unknown]
  - Hypervitaminosis [Not Recovered/Not Resolved]
  - Fluid overload [Unknown]
  - Laceration [Not Recovered/Not Resolved]
  - Oxygen saturation decreased [Unknown]
  - Renal tubular necrosis [Not Recovered/Not Resolved]
  - Contusion [Not Recovered/Not Resolved]
  - Oedema [Unknown]
  - Localised oedema [Unknown]
  - Hypoxia [Recovering/Resolving]
  - Brain natriuretic peptide increased [Recovering/Resolving]
  - Prolapse repair [Recovered/Resolved]
  - Ear infection [Unknown]
  - Oedema peripheral [Unknown]
  - Tremor [Recovered/Resolved]
  - Uterovaginal prolapse [Recovered/Resolved]
  - Pain [Not Recovered/Not Resolved]
  - Fluid retention [Unknown]
  - Condition aggravated [Recovering/Resolving]
  - Dyspnoea [Recovering/Resolving]
  - Sinusitis [Unknown]
  - Loss of consciousness [Unknown]
  - Blood creatinine increased [Not Recovered/Not Resolved]
  - Malaise [Unknown]
  - Swelling [Unknown]
  - Feeling abnormal [Unknown]

NARRATIVE: CASE EVENT DATE: 20150222
